FAERS Safety Report 6970216-9 (Version None)
Quarter: 2010Q3

REPORT INFORMATION
  Report Type: 
  Country: None (occurrence: None)
  Receive Date: 20100908
  Receipt Date: 20100902
  Transmission Date: 20110219
  Serious: Yes (Death, Hospitalization)
  Sender: FDA-Public Use
  Company Number: GB-BAYER-201032790GPV

PATIENT
  Age: 63 Year
  Sex: Male
  Weight: 70 kg

DRUGS (25)
  1. SORAFENIB [Suspect]
     Indication: RENAL CELL CARCINOMA
     Dosage: TOTAL DAILY DOSE: 800 MG
     Dates: start: 20091118, end: 20100115
  2. BISOPROLOL FUMARATE [Concomitant]
     Indication: HYPERTENSION
     Route: 048
     Dates: start: 20091006, end: 20100127
  3. FELODIPINE [Concomitant]
     Indication: HYPERTENSION
     Dates: start: 20091006, end: 20100119
  4. ACETAMINOPHEN [Concomitant]
     Dosage: UNIT DOSE: 500 MG
     Route: 048
     Dates: start: 20100121
  5. CEFTRIAXONE [Concomitant]
     Dosage: UNIT DOSE: 2 G
     Route: 042
     Dates: start: 20100121
  6. LANSOPRAZOLE [Concomitant]
     Indication: DYSPEPSIA
  7. ACETYLCYSTEINE [Concomitant]
     Dosage: OVER 15 MINS
     Dates: start: 20100121
  8. ACETYLCYSTEINE [Concomitant]
     Dosage: OVER 4 HOURS
     Dates: start: 20100121
  9. ACETYLCYSTEINE [Concomitant]
     Dosage: OVER 16 HOURS
     Dates: start: 20100122
  10. ANTIBIOTICS [Concomitant]
     Dates: start: 20100121
  11. VITAMIN K TAB [Concomitant]
     Dosage: 150MG/KG
     Dates: start: 20100120
  12. VITAMIN K TAB [Concomitant]
     Dates: start: 20100124
  13. LACTULOSE [Concomitant]
     Dates: start: 20100124
  14. FLUCONAZOLE [Concomitant]
     Dosage: SINGLE DOSE
     Dates: start: 20100124
  15. RENAL REPLACEMENT THERAPY [Concomitant]
     Indication: BLOOD LACTIC ACID INCREASED
     Dates: start: 20100124
  16. ONDANSETRON [Concomitant]
     Route: 042
     Dates: start: 20100122
  17. ONDANSETRON [Concomitant]
     Route: 048
     Dates: start: 20100121
  18. ENSURES [Concomitant]
     Route: 048
     Dates: start: 20100120
  19. ENSURES [Concomitant]
     Dosage: DOSE AT 10.00 AND ONE AT 16:00
     Route: 048
     Dates: start: 20100121
  20. CYCLIZINE [Concomitant]
     Dosage: UNIT DOSE: 50 MG
     Dates: start: 20100122
  21. CYCLIZINE [Concomitant]
     Dosage: UNIT DOSE: 50 MG
     Dates: start: 20100120, end: 20100121
  22. N SALINE [Concomitant]
     Route: 042
     Dates: start: 20100120, end: 20100101
  23. METOCLOPRAMIDE [Concomitant]
     Dates: start: 20100121, end: 20100122
  24. SODIUM GLYCEROPHOSPHATE [Concomitant]
     Route: 048
     Dates: start: 20100121
  25. PHOSPHATE - SANDOZ [Concomitant]
     Dosage: 2
     Route: 048
     Dates: start: 20100122

REACTIONS (4)
  - HEPATIC ENCEPHALOPATHY [None]
  - HEPATIC FAILURE [None]
  - JAUNDICE [None]
  - RENAL FAILURE [None]
